FAERS Safety Report 20056423 (Version 4)
Quarter: 2022Q2

REPORT INFORMATION
  Report Type: Report from Study
  Country: CO (occurrence: CO)
  Receive Date: 20211111
  Receipt Date: 20220620
  Transmission Date: 20220720
  Serious: Yes (Other)
  Sender: FDA-Public Use
  Company Number: CO-ABBVIE-21K-036-4154486-00

PATIENT
  Sex: Female
  Weight: 59 kg

DRUGS (13)
  1. HUMIRA [Suspect]
     Active Substance: ADALIMUMAB
     Indication: Ankylosing spondylitis
     Route: 058
     Dates: start: 20170616
  2. HUMIRA [Suspect]
     Active Substance: ADALIMUMAB
     Indication: Ankylosing spondylitis
     Route: 058
     Dates: end: 20220525
  3. DEFLAZACORT [Suspect]
     Active Substance: DEFLAZACORT
     Indication: Product used for unknown indication
     Dosage: 1/2 TABLET PER DAY
     Route: 065
     Dates: end: 2022
  4. CARBOMER 940 [Suspect]
     Active Substance: CARBOMER HOMOPOLYMER TYPE C (ALLYL PENTAERYTHRITOL CROSSLINKED)
     Indication: Uveitis
     Dosage: APPLIED AT NIGHT
     Route: 047
     Dates: end: 2022
  5. SYSTANE (HYPROMELLOSE 2910 (4000 MPA.S)) [Concomitant]
     Active Substance: HYPROMELLOSE 2910 (4000 MPA.S)
     Indication: Eye lubrication therapy
     Dosage: 1 DROP IN EACH EYE
     Route: 047
  6. SYSTANE (HYPROMELLOSE 2910 (4000 MPA.S)) [Concomitant]
     Active Substance: HYPROMELLOSE 2910 (4000 MPA.S)
     Indication: Eye lubrication therapy
     Dosage: 1 DROP IN EACH EYE, 5 TIMES PER DAY
  7. SYSTANE (HYPROMELLOSE 2910 (4000 MPA.S)) [Concomitant]
     Active Substance: HYPROMELLOSE 2910 (4000 MPA.S)
     Indication: Uveitis
  8. ACRYLARM [Concomitant]
     Indication: Uveitis
     Route: 047
  9. BRIMONIDINE TARTRATE\TIMOLOL MALEATE [Concomitant]
     Active Substance: BRIMONIDINE TARTRATE\TIMOLOL MALEATE
     Indication: Uveitis
  10. TIMOLOL [Concomitant]
     Active Substance: TIMOLOL
     Indication: Product used for unknown indication
     Dosage: IN RIGHT EYE
     Route: 047
  11. ZEBESTEN [Concomitant]
     Indication: Uveitis
     Dosage: 1 DROP IN THE LEFT EYE
     Route: 047
  12. ACID ZOLEDRONIC ACCORD [Concomitant]
     Indication: Product used for unknown indication
     Route: 042
  13. COVID-19 VACCINE [Concomitant]
     Indication: COVID-19 immunisation
     Dosage: FOURTH DOSE
     Dates: start: 20220603, end: 20220603

REACTIONS (22)
  - Ligament disorder [Recovering/Resolving]
  - Glaucoma [Recovered/Resolved]
  - Amnesia [Not Recovered/Not Resolved]
  - Osteoarthritis [Unknown]
  - Joint effusion [Recovering/Resolving]
  - Arthropathy [Recovering/Resolving]
  - Neuralgia [Not Recovered/Not Resolved]
  - Inflammation [Recovering/Resolving]
  - Vision blurred [Not Recovered/Not Resolved]
  - Arthralgia [Recovering/Resolving]
  - Pain [Recovering/Resolving]
  - Finger deformity [Not Recovered/Not Resolved]
  - Rhinorrhoea [Not Recovered/Not Resolved]
  - Discomfort [Not Recovered/Not Resolved]
  - Weight increased [Not Recovered/Not Resolved]
  - Osteoporosis [Recovering/Resolving]
  - Eye disorder [Not Recovered/Not Resolved]
  - Sacroiliitis [Not Recovered/Not Resolved]
  - Headache [Not Recovered/Not Resolved]
  - Muscular weakness [Not Recovered/Not Resolved]
  - Spinal pain [Not Recovered/Not Resolved]
  - Influenza like illness [Not Recovered/Not Resolved]

NARRATIVE: CASE EVENT DATE: 20200101
